FAERS Safety Report 6425035-9 (Version None)
Quarter: 2009Q4

REPORT INFORMATION
  Report Type: 
  Country: None (occurrence: None)
  Receive Date: 20091103
  Receipt Date: 20091023
  Transmission Date: 20100525
  Serious: Yes (Hospitalization)
  Sender: FDA-Public Use
  Company Number: CA-BAXTER-2009BH016264

PATIENT
  Age: 50 Year
  Sex: Male
  Weight: 87 kg

DRUGS (13)
  1. TISSEEL VH KIT [Suspect]
     Indication: TISSUE SEALING
     Route: 029
     Dates: start: 20091005, end: 20091005
  2. CIPROFLOXACIN [Concomitant]
     Route: 048
     Dates: start: 20091010
  3. SCOPOLAMINE [Concomitant]
     Route: 062
     Dates: start: 20091014
  4. ENOXAPARIN SODIUM [Concomitant]
     Dates: start: 20091010
  5. COLACE [Concomitant]
     Dates: start: 20091010
  6. DECADRON /CAN/ [Concomitant]
     Dates: start: 20091010
  7. TEARS NATURALE [Concomitant]
  8. PANTOPRAZOLE [Concomitant]
  9. HYDRALAZINE HCL [Concomitant]
  10. MAGNOLAX [Concomitant]
  11. DULCOLAX [Concomitant]
  12. ONDANSETRON [Concomitant]
  13. TYLENOL [Concomitant]

REACTIONS (1)
  - INTRACRANIAL HYPOTENSION [None]
